FAERS Safety Report 5780973-5 (Version None)
Quarter: 2008Q2

REPORT INFORMATION
  Report Type: 
  Country: None (occurrence: None)
  Receive Date: 20080620
  Receipt Date: 20080610
  Transmission Date: 20081010
  Serious: Yes (Other)
  Sender: FDA-Public Use
  Company Number: US-MERCK-0806USA01017

PATIENT
  Age: 79 Year
  Sex: Male
  Weight: 78 kg

DRUGS (14)
  1. JANUVIA [Suspect]
     Indication: DIABETES MELLITUS
     Route: 048
     Dates: start: 20060101, end: 20080201
  2. JANUVIA [Suspect]
     Route: 048
     Dates: start: 20080101, end: 20080603
  3. JANUVIA [Suspect]
     Indication: BLOOD GLUCOSE INCREASED
     Route: 048
     Dates: start: 20060101, end: 20080201
  4. JANUVIA [Suspect]
     Route: 048
     Dates: start: 20080101, end: 20080603
  5. CRESTOR [Concomitant]
     Route: 065
  6. NIACIN [Concomitant]
     Route: 065
  7. METFORMIN [Concomitant]
     Route: 065
  8. LOVAGE [Concomitant]
     Route: 065
  9. ASPIRIN [Concomitant]
     Route: 065
  10. ZETIA [Concomitant]
     Route: 065
  11. PROVIGIL [Concomitant]
     Route: 065
  12. NEXIUM [Concomitant]
     Route: 065
  13. FLOMAX (MORNIFLUMATE) [Concomitant]
     Route: 065
  14. AVODART [Concomitant]
     Route: 065

REACTIONS (2)
  - ARTHROPATHY [None]
  - RASH MACULAR [None]
